FAERS Safety Report 21738985 (Version 1)
Quarter: 2022Q4

REPORT INFORMATION
  Report Type: Report from Study
  Country: PR (occurrence: PR)
  Receive Date: 20221216
  Receipt Date: 20221216
  Transmission Date: 20230113
  Serious: No
  Sender: FDA-Public Use
  Company Number: PR-ABBVIE-4195818

PATIENT
  Sex: Female

DRUGS (8)
  1. HUMIRA [Suspect]
     Active Substance: ADALIMUMAB
     Indication: Rheumatoid arthritis
     Dosage: 40MG
     Route: 058
     Dates: start: 200810
  2. Fluticasone (Flovent) [Concomitant]
     Indication: Asthma
     Route: 055
     Dates: start: 202209
  3. AMITRIPTYLINE [Concomitant]
     Active Substance: AMITRIPTYLINE
     Indication: Migraine
     Dosage: AS NEEDED
     Route: 048
     Dates: start: 2020
  4. Esomeprazol (Nexium) [Concomitant]
     Indication: Chronic gastritis
     Dosage: START DATE TEXT: MORE THAN 5 YEARS AGO
     Route: 048
  5. ALBUTEROL [Concomitant]
     Active Substance: ALBUTEROL
     Indication: Asthma
     Route: 055
     Dates: start: 202109
  6. TOZINAMERAN [Concomitant]
     Active Substance: TOZINAMERAN
     Indication: COVID-19
     Dosage: 2ND DOSE?ONE IN ONCE
     Route: 030
  7. TOZINAMERAN [Concomitant]
     Active Substance: TOZINAMERAN
     Indication: COVID-19
     Dosage: 1ST DOSE?ONE IN ONCE
     Route: 030
  8. TOZINAMERAN [Concomitant]
     Active Substance: TOZINAMERAN
     Indication: COVID-19
     Dosage: 3RD DOSE?ONE IN ONCE
     Route: 030

REACTIONS (5)
  - Pharyngitis [Recovering/Resolving]
  - Sinusitis [Recovering/Resolving]
  - Migraine [Recovering/Resolving]
  - Asthma [Recovering/Resolving]
  - Sinus congestion [Unknown]

NARRATIVE: CASE EVENT DATE: 20200101
